FAERS Safety Report 4860136-8 (Version None)
Quarter: 2005Q4

REPORT INFORMATION
  Report Type: 
  Country: None (occurrence: None)
  Receive Date: 20051219
  Receipt Date: 20050503
  Transmission Date: 20060501
  Serious: Yes (Hospitalization)
  Sender: FDA-Public Use
  Company Number: US-MERCK-0505USA00503

PATIENT
  Age: 74 Year
  Sex: Female
  Weight: 58 kg

DRUGS (10)
  1. VIOXX [Suspect]
     Indication: ARTHRITIS
     Route: 048
     Dates: start: 20000401, end: 20030101
  2. VIOXX [Suspect]
     Route: 048
     Dates: start: 20000401, end: 20030101
  3. VIOXX [Suspect]
     Route: 048
     Dates: start: 20000401, end: 20030101
  4. VIOXX [Suspect]
     Indication: PAIN
     Route: 048
     Dates: start: 20000401, end: 20030101
  5. VIOXX [Suspect]
     Route: 048
     Dates: start: 20000401, end: 20030101
  6. VIOXX [Suspect]
     Route: 048
     Dates: start: 20000401, end: 20030101
  7. ATENOLOL [Concomitant]
     Route: 065
  8. SYNTHROID [Concomitant]
     Route: 065
  9. ZANTAC [Concomitant]
     Route: 065
  10. EXCEDRIN (MIGRAINE) [Concomitant]
     Route: 065

REACTIONS (8)
  - DEPRESSION [None]
  - ECCHYMOSIS [None]
  - FALL [None]
  - GASTROINTESTINAL DISORDER [None]
  - HYPERCHOLESTEROLAEMIA [None]
  - JOINT DISLOCATION [None]
  - LACUNAR INFARCTION [None]
  - STRESS INCONTINENCE [None]
